FAERS Safety Report 22912464 (Version 3)
Quarter: 2023Q4

REPORT INFORMATION
  Report Type: Report from Study
  Country: None (occurrence: DE)
  Receive Date: 20230906
  Receipt Date: 20231109
  Transmission Date: 20240110
  Serious: Yes (Hospitalization)
  Sender: FDA-Public Use
  Company Number: DE-CLINUVEL INC-2145672

PATIENT
  Age: 29 Year
  Sex: Male
  Weight: 75 kg

DRUGS (2)
  1. SCENESSE [Suspect]
     Active Substance: AFAMELANOTIDE
     Indication: Porphyria non-acute
     Route: 058
     Dates: start: 20230818, end: 20230818
  2. VITAMIN D [Concomitant]
     Active Substance: VITAMIN D NOS
     Route: 048
     Dates: start: 20210801

REACTIONS (3)
  - Implant site urticaria [Recovered/Resolved]
  - Asthenia [Unknown]
  - Malaise [Unknown]

NARRATIVE: CASE EVENT DATE: 20230818
